FAERS Safety Report 13984980 (Version 7)
Quarter: 2018Q1

REPORT INFORMATION
  Report Type: Report from Study
  Country: US (occurrence: US)
  Receive Date: 20170919
  Receipt Date: 20180226
  Transmission Date: 20180508
  Serious: Yes (Hospitalization, Other)
  Sender: FDA-Public Use
  Company Number: US-ACTELION-A-NJ2017-159570

PATIENT
  Age: 55 Year
  Sex: Female
  Weight: 79.37 kg

DRUGS (5)
  1. WARFARIN SODIUM. [Concomitant]
     Active Substance: WARFARIN SODIUM
  2. VELETRI [Suspect]
     Active Substance: EPOPROSTENOL
     Indication: PULMONARY HYPERTENSION
     Dosage: 11.6 NG/KG, PER MIN
     Route: 042
  3. VELETRI [Suspect]
     Active Substance: EPOPROSTENOL
     Dosage: 10.25 NG/KG, PER MIN
     Route: 042
  4. ADCIRCA [Concomitant]
     Active Substance: TADALAFIL
  5. REVATIO [Concomitant]
     Active Substance: SILDENAFIL CITRATE

REACTIONS (15)
  - Malaise [Unknown]
  - Bacteraemia [Unknown]
  - Pneumonia [Unknown]
  - Anaemia [Unknown]
  - Urinary tract infection [Unknown]
  - Decreased appetite [Unknown]
  - Atrial fibrillation [Unknown]
  - Weight decreased [Unknown]
  - Encephalopathy [Unknown]
  - Swelling [Unknown]
  - Hallucination [Unknown]
  - Vomiting [Unknown]
  - Diarrhoea [Unknown]
  - Pulmonary oedema [Unknown]
  - Arrhythmia [Unknown]

NARRATIVE: CASE EVENT DATE: 201708
